FAERS Safety Report 10401948 (Version 2)
Quarter: 2014Q3

REPORT INFORMATION
  Report Type: Not Available
  Country: FR (occurrence: FR)
  Receive Date: 20140822
  Receipt Date: 20140901
  Transmission Date: 20150326
  Serious: Yes (Death, Hospitalization)
  Sender: FDA-Public Use
  Company Number: FR-BEH-2014044503

PATIENT
  Age: 49 Year
  Sex: Female

DRUGS (1)
  1. PRIVIGEN [Suspect]
     Active Substance: HUMAN IMMUNOGLOBULIN G
     Indication: POLYMYOSITIS
     Route: 040
     Dates: start: 20140725, end: 20140725

REACTIONS (20)
  - Hepatic failure [Unknown]
  - Rhabdomyolysis [Unknown]
  - Hepatic enzyme increased [Unknown]
  - Renal impairment [Unknown]
  - Neurological decompensation [Unknown]
  - Lactic acidosis [Unknown]
  - Haemodynamic instability [Unknown]
  - Hepatocellular injury [Unknown]
  - Coma [Unknown]
  - Hepatic encephalopathy [Unknown]
  - Areflexia [Unknown]
  - Mydriasis [Unknown]
  - Hepatic failure [Unknown]
  - Renal failure acute [Fatal]
  - Condition aggravated [Unknown]
  - Hepatic function abnormal [Unknown]
  - Renal failure [Fatal]
  - Coma [Unknown]
  - Drug administration error [Unknown]
  - Bacterial sepsis [Unknown]

NARRATIVE: CASE EVENT DATE: 20140726
